FAERS Safety Report 5772837-8 (Version None)
Quarter: 2008Q2

REPORT INFORMATION
  Report Type: 
  Country: None (occurrence: None)
  Receive Date: 20080613
  Receipt Date: 20080522
  Transmission Date: 20081010
  Serious: Yes (Other)
  Sender: FDA-Public Use
  Company Number: US-ABBOTT-08P-163-0453046-00

PATIENT
  Sex: Male
  Weight: 85.806 kg

DRUGS (5)
  1. SYNTHROID [Suspect]
     Indication: PITUITARY TUMOUR REMOVAL
     Route: 048
     Dates: start: 20060101
  2. HORMONE REPLACEMENT [Concomitant]
     Indication: DRUG USE FOR UNKNOWN INDICATION
  3. DESMOPRESSIN ACETATE [Concomitant]
     Indication: DRUG USE FOR UNKNOWN INDICATION
  4. ACORTES [Concomitant]
     Indication: DRUG USE FOR UNKNOWN INDICATION
  5. ANGROGEL [Concomitant]
     Indication: DRUG USE FOR UNKNOWN INDICATION

REACTIONS (10)
  - ANXIETY [None]
  - DISTURBANCE IN ATTENTION [None]
  - ERYTHEMA [None]
  - HEADACHE [None]
  - HOT FLUSH [None]
  - HYPOTHALAMO-PITUITARY DISORDER [None]
  - INSOMNIA [None]
  - PARAESTHESIA [None]
  - PITUITARY TUMOUR RECURRENT [None]
  - VISUAL DISTURBANCE [None]
